FAERS Safety Report 10034281 (Version 1)
Quarter: 2014Q1

REPORT INFORMATION
  Report Type: Spontaneous
  Country: US (occurrence: US)
  Receive Date: 20140325
  Receipt Date: 20140325
  Transmission Date: 20141002
  Serious: No
  Sender: FDA-Public Use
  Company Number: US-B.I. PHARMACEUTICALS,INC./RIDGEFIELD-2014-BI-11753BP

PATIENT
  Sex: Female
  Weight: 30 kg

DRUGS (5)
  1. SPIRIVA [Suspect]
     Indication: EMPHYSEMA
     Dosage: 18 MCG
     Route: 055
     Dates: start: 2004
  2. ADVAIR [Concomitant]
     Dosage: FORMULATION: INHALATION AEROSOL
     Route: 055
  3. ISOSORBIDE [Concomitant]
     Indication: CARDIAC DISORDER
     Route: 048
  4. METOPROLOL [Concomitant]
     Indication: CARDIAC DISORDER
     Route: 048
  5. UNKNOWN MEDICATION [Concomitant]
     Indication: HYPERTENSION
     Route: 048

REACTIONS (6)
  - Dyspnoea [Not Recovered/Not Resolved]
  - Hypoaesthesia [Not Recovered/Not Resolved]
  - Carpal tunnel syndrome [Not Recovered/Not Resolved]
  - Dysphonia [Not Recovered/Not Resolved]
  - Dysphonia [Not Recovered/Not Resolved]
  - Dysphonia [Not Recovered/Not Resolved]
